FAERS Safety Report 15376139 (Version 1)
Quarter: 2018Q3

REPORT INFORMATION
  Report Type: Spontaneous
  Country: US (occurrence: US)
  Receive Date: 20180912
  Receipt Date: 20180912
  Transmission Date: 20181010
  Serious: No
  Sender: FDA-Public Use
  Company Number: US-KOWA-17US002073

PATIENT

DRUGS (1)
  1. LIVALO [Suspect]
     Active Substance: PITAVASTATIN CALCIUM
     Indication: LOW DENSITY LIPOPROTEIN
     Dosage: 2 MG, QD
     Dates: end: 20171010

REACTIONS (1)
  - Hepatic enzyme increased [Unknown]
